FAERS Safety Report 25181725 (Version 1)
Quarter: 2025Q2

REPORT INFORMATION
  Report Type: Spontaneous
  Country: US (occurrence: US)
  Receive Date: 20250410
  Receipt Date: 20250410
  Transmission Date: 20250717
  Serious: No
  Sender: Haleon PLC
  Company Number: US-HALEON-2237206

PATIENT

DRUGS (1)
  1. VOLTAREN ARTHRITIS PAIN [Suspect]
     Active Substance: DICLOFENAC SODIUM
     Indication: Arthritis

REACTIONS (6)
  - Arthritis [Unknown]
  - Application site vesicles [Unknown]
  - Product administered at inappropriate site [Unknown]
  - Product use issue [Unknown]
  - Application site pain [Unknown]
  - Application site pruritus [Unknown]
